FAERS Safety Report 4634612-7 (Version None)
Quarter: 2005Q2

REPORT INFORMATION
  Report Type: 
  Country: None (occurrence: None)
  Receive Date: 20050413
  Receipt Date: 20050329
  Transmission Date: 20051028
  Serious: Yes (Hospitalization)
  Sender: FDA-Public Use
  Company Number: DEU-2005-0001336

PATIENT
  Sex: Male

DRUGS (2)
  1. PALLADONE [Suspect]
     Indication: CANCER PAIN
     Dosage: 4 MG BID ORAL
     Route: 048
  2. DEXAMETHASONE [Concomitant]

REACTIONS (7)
  - ANXIETY [None]
  - CONFUSIONAL STATE [None]
  - DELIRIUM [None]
  - FUMBLING [None]
  - OVERDOSE [None]
  - PNEUMONIA [None]
  - RESTLESSNESS [None]
